FAERS Safety Report 7594040-1 (Version None)
Quarter: 2011Q3

REPORT INFORMATION
  Report Type: 
  Country: None (occurrence: None)
  Receive Date: 20110706
  Receipt Date: 20110701
  Transmission Date: 20111222
  Serious: Yes (Hospitalization)
  Sender: FDA-Public Use
  Company Number: JP-ROCHE-787426

PATIENT
  Age: 74 Year
  Sex: Female

DRUGS (4)
  1. AVASTIN [Suspect]
     Indication: NON-SMALL CELL LUNG CANCER
     Route: 041
     Dates: start: 20110621
  2. DEPAS [Suspect]
     Dosage: FORM: PERORAL AGENT, NOTE: DOSAGE IS UNCERTAIN.
     Route: 048
  3. DIOVAN [Suspect]
     Dosage: NOTE: DOSAGE IS UNCERTAIN.
     Route: 048
  4. AMLODIPINE [Suspect]
     Dosage: NOTE: DOSAGE IS UNCERTAIN.
     Route: 048

REACTIONS (1)
  - RHABDOMYOLYSIS [None]
